FAERS Safety Report 6348477-9 (Version None)
Quarter: 2009Q3

REPORT INFORMATION
  Report Type: 
  Country: None (occurrence: None)
  Receive Date: 20090911
  Receipt Date: 20090903
  Transmission Date: 20100115
  Serious: Yes (Other)
  Sender: FDA-Public Use
  Company Number: US-ASTRAZENECA-2009SE11787

PATIENT
  Age: 66 Year
  Sex: Female
  Weight: 68 kg

DRUGS (5)
  1. SEROQUEL [Suspect]
     Indication: BIPOLAR DISORDER
     Route: 048
     Dates: start: 20070101
  2. SEROQUEL [Suspect]
     Indication: SCHIZOPHRENIA
     Route: 048
     Dates: start: 20070101
  3. VYTORIN [Concomitant]
     Indication: HYPERLIPIDAEMIA
     Dates: start: 20000101
  4. PIOGLITAZONE [Concomitant]
     Indication: BLOOD TRIGLYCERIDES INCREASED
     Dates: start: 20000101
  5. ELAVIL [Concomitant]
     Indication: PAIN

REACTIONS (2)
  - ARTHROPATHY [None]
  - TYPE 2 DIABETES MELLITUS [None]
